FAERS Safety Report 8250160-X (Version None)
Quarter: 2012Q2

REPORT INFORMATION
  Report Type: 
  Country: None (occurrence: None)
  Receive Date: 20120402
  Receipt Date: 20120326
  Transmission Date: 20120825
  Serious: Yes (Other)
  Sender: FDA-Public Use
  Company Number: US-JNJFOC-20120313118

PATIENT

DRUGS (5)
  1. DOXORUBICIN HCL [Suspect]
     Indication: HODGKIN'S DISEASE
     Route: 042
  2. DACARBAZINE [Suspect]
     Indication: HODGKIN'S DISEASE
     Route: 065
  3. VINBLASTINE SULFATE [Suspect]
     Indication: HODGKIN'S DISEASE
     Route: 065
  4. BRENTUXIMAB VEDOTIN [Suspect]
     Indication: HODGKIN'S DISEASE
     Route: 065
  5. BLEOMYCIN SULFATE [Suspect]
     Indication: HODGKIN'S DISEASE
     Route: 065

REACTIONS (10)
  - NAUSEA [None]
  - NEUTROPENIA [None]
  - ANAEMIA [None]
  - PERIPHERAL SENSORY NEUROPATHY [None]
  - FATIGUE [None]
  - INTERSTITIAL LUNG DISEASE [None]
  - FEBRILE NEUTROPENIA [None]
  - PULMONARY TOXICITY [None]
  - DYSPNOEA [None]
  - INFUSION RELATED REACTION [None]
